FAERS Safety Report 22192765 (Version 2)
Quarter: 2023Q2

REPORT INFORMATION
  Report Type: Spontaneous
  Country: AT (occurrence: AT)
  Receive Date: 20230410
  Receipt Date: 20230529
  Transmission Date: 20230721
  Serious: Yes (Other)
  Sender: FDA-Public Use
  Company Number: AT-ROCHE-3310756

PATIENT
  Sex: Female
  Weight: 49 kg

DRUGS (25)
  1. UNSPECIFIED INGREDIENT [Suspect]
     Active Substance: UNSPECIFIED INGREDIENT
     Indication: Product used for unknown indication
  2. PREDNISONE [Suspect]
     Active Substance: PREDNISONE
     Indication: Product used for unknown indication
  3. CYCLOPHOSPHAMIDE [Suspect]
     Active Substance: CYCLOPHOSPHAMIDE
     Indication: Product used for unknown indication
  4. IFOSFAMIDE [Suspect]
     Active Substance: IFOSFAMIDE
     Indication: Product used for unknown indication
  5. ETOPOSIDE [Suspect]
     Active Substance: ETOPOSIDE
     Indication: Product used for unknown indication
     Dosage: 100 MG/M2 D1-3
  6. CYTARABINE [Suspect]
     Active Substance: CYTARABINE
     Indication: Product used for unknown indication
  7. RITUXIMAB [Suspect]
     Active Substance: RITUXIMAB
     Indication: Product used for unknown indication
  8. IFOSFAMIDE [Suspect]
     Active Substance: IFOSFAMIDE
     Indication: Product used for unknown indication
     Dosage: 5,000 MG/M2 D2; 2 CYCLES  9.11.23- 5.12.23
  9. METHOTREXATE SODIUM [Suspect]
     Active Substance: METHOTREXATE SODIUM
     Indication: Product used for unknown indication
  10. CARBOPLATIN [Suspect]
     Active Substance: CARBOPLATIN
     Indication: Product used for unknown indication
     Dosage: AUS 5 D2
  11. POLIVY [Suspect]
     Active Substance: POLATUZUMAB VEDOTIN-PIIQ
     Indication: Product used for unknown indication
     Dosage: 1.8 MG/KG D1
     Dates: start: 20221124, end: 20221204
  12. CANDAM [Concomitant]
     Dosage: (CANDESARTAN CILEXETIL 8 MG, AMLODIPINE 5 MG, -})
  13. LEVOFLOXACIN [Concomitant]
     Active Substance: LEVOFLOXACIN
     Dosage: 500 MG
  14. ALLOPURINOL [Concomitant]
     Active Substance: ALLOPURINOL
     Dosage: 300 MG
  15. FILGRASTIM [Concomitant]
     Active Substance: FILGRASTIM
     Dosage: (FILGRASTIM 30,000,000 IU)
  16. URSODIOL [Concomitant]
     Active Substance: URSODIOL
     Dosage: 250 MG
  17. VALACYCLOVIR HYDROCHLORIDE [Concomitant]
     Active Substance: VALACYCLOVIR HYDROCHLORIDE
     Dosage: (VALACICLOVIR 500 MG, TITANIUM DIOXIDE HYPROMELLOSE)
  18. ENTOCORT [Concomitant]
     Active Substance: BUDESONIDE
     Dosage: (BUDESONIDE 3 MG, -})
  19. PANTOPRAZOLE SODIUM [Concomitant]
     Active Substance: PANTOPRAZOLE SODIUM
     Dosage: (PANTOPRAZOLE 40 MG, -})
  20. PANTOPRAZOLE [Concomitant]
     Active Substance: PANTOPRAZOLE
  21. ASCORBIC ACID\CALCIUM PHOSPHATE\CHOLECALCIFEROL\CITRIC ACID MONOHYDRAT [Concomitant]
     Active Substance: ASCORBIC ACID\CALCIUM PHOSPHATE\CHOLECALCIFEROL\CITRIC ACID MONOHYDRATE
     Dosage: (CALCIUM CARBONATE, CHOLECALCIFEROL 800 IU, -})
  22. KALIORAL [Concomitant]
  23. POSACONAZOLE [Concomitant]
     Active Substance: POSACONAZOLE
     Dosage: 100 MG
  24. SULFAMETHOXAZOLE\TRIMETHOPRIM [Concomitant]
     Active Substance: SULFAMETHOXAZOLE\TRIMETHOPRIM
     Dosage: (TRIMETHOPRIM 80 MG, SULFAMETHOXAZOLE 400 MG)
  25. ATORVADIVID [Concomitant]
     Dosage: 20 MG

REACTIONS (4)
  - Disease progression [Unknown]
  - Enteritis [Unknown]
  - Blood lactate dehydrogenase increased [Unknown]
  - Off label use [Unknown]
